FAERS Safety Report 17524451 (Version 1)
Quarter: 2020Q1

REPORT INFORMATION
  Report Type: Spontaneous
  Country: US (occurrence: US)
  Receive Date: 20200308
  Receipt Date: 20200308
  Transmission Date: 20200409
  Serious: No
  Sender: FDA-Public Use
  Company Number: US-ELI_LILLY_AND_COMPANY-US202002012981

PATIENT
  Age: 48 Year
  Sex: Male

DRUGS (6)
  1. BASAGLAR [Suspect]
     Active Substance: INSULIN GLARGINE
     Indication: TYPE 2 DIABETES MELLITUS
     Dosage: 40 U, EACH EVENING
     Route: 058
     Dates: start: 202001
  2. BASAGLAR [Suspect]
     Active Substance: INSULIN GLARGINE
     Indication: TYPE 2 DIABETES MELLITUS
     Dosage: 40 U, EACH EVENING
     Route: 058
     Dates: start: 202001
  3. BASAGLAR [Suspect]
     Active Substance: INSULIN GLARGINE
     Dosage: 40 U, EACH EVENING
     Route: 058
     Dates: start: 202001
  4. HUMALOG [Suspect]
     Active Substance: INSULIN LISPRO
     Indication: TYPE 2 DIABETES MELLITUS
     Dosage: UNK, UNKNOWN
     Route: 058
  5. LEVEMIR [Concomitant]
     Active Substance: INSULIN DETEMIR
     Indication: TYPE 2 DIABETES MELLITUS
  6. BASAGLAR [Suspect]
     Active Substance: INSULIN GLARGINE
     Dosage: 40 U, EACH EVENING
     Route: 058
     Dates: start: 202001

REACTIONS (10)
  - Injection site pain [Recovering/Resolving]
  - Blood glucose increased [Recovering/Resolving]
  - Malaise [Recovering/Resolving]
  - Injection site swelling [Recovering/Resolving]
  - Wrong technique in product usage process [Recovering/Resolving]
  - Nephropathy [Recovering/Resolving]
  - Feeling cold [Recovering/Resolving]
  - Injection site mass [Recovering/Resolving]
  - Drug ineffective [Recovering/Resolving]
  - Influenza like illness [Recovering/Resolving]

NARRATIVE: CASE EVENT DATE: 201902
